FAERS Safety Report 16954174 (Version 1)
Quarter: 2019Q4

REPORT INFORMATION
  Report Type: Spontaneous
  Country: DK (occurrence: DK)
  Receive Date: 20191023
  Receipt Date: 20191023
  Transmission Date: 20200122
  Serious: Yes (Death, Life-Threatening, Hospitalization)
  Sender: FDA-Public Use
  Company Number: DK-PFM-2019-12534

PATIENT

DRUGS (5)
  1. METOPROLOL TARTRATE. [Concomitant]
     Active Substance: METOPROLOL TARTRATE
     Indication: CARDIAC DISORDER
     Dosage: 300 MG, DAILY
     Route: 048
     Dates: start: 20190810
  2. AKYNZEO [Interacting]
     Active Substance: NETUPITANT\PALONOSETRON HYDROCHLORIDE
     Indication: PROPHYLAXIS OF NAUSEA AND VOMITING
     Dosage: 1 KAPSEL 1 TIME FOR CARBOPLATIN BEHANDLING.
     Route: 048
     Dates: start: 20190828
  3. CARBOPLATIN ACCORD [Suspect]
     Active Substance: CARBOPLATIN
     Indication: NON-SMALL CELL LUNG CANCER
     Dosage: 495 MG, UNK
     Route: 042
     Dates: start: 20190828
  4. NAVELBINE [Suspect]
     Active Substance: VINORELBINE TARTRATE
     Indication: NON-SMALL CELL LUNG CANCER
     Dosage: 110 MG, UNK
     Route: 048
     Dates: start: 20190828
  5. DIGOXIN DAK [Concomitant]
     Active Substance: DIGOXIN
     Indication: ARRHYTHMIA
     Dosage: 312 ?G, UNK
     Route: 048
     Dates: start: 20190811

REACTIONS (12)
  - Blood bilirubin increased [Fatal]
  - Septic shock [Fatal]
  - Neutropenia [Fatal]
  - Stomatitis [Fatal]
  - Fluid overload [Fatal]
  - Pulmonary oedema [Fatal]
  - Dyspnoea [Fatal]
  - Drug interaction [Fatal]
  - Neutropenic colitis [Fatal]
  - Sepsis [Fatal]
  - Rectal haemorrhage [Fatal]
  - Pyrexia [Fatal]

NARRATIVE: CASE EVENT DATE: 201909
